FAERS Safety Report 6245366-5 (Version None)
Quarter: 2009Q2

REPORT INFORMATION
  Report Type: 
  Country: None (occurrence: None)
  Receive Date: 20090625
  Receipt Date: 20090624
  Transmission Date: 20091009
  Serious: Yes (Hospitalization)
  Sender: FDA-Public Use
  Company Number: AU-BRISTOL-MYERS SQUIBB COMPANY-14619852

PATIENT
  Age: 49 Year
  Sex: Female

DRUGS (13)
  1. TAXOL [Suspect]
     Indication: BREAST CANCER
     Dosage: INITIATED-02APR09:ALSO GIVEN ON 16APR09;11MAY09;28MAY09 (EVERY SECOND WEEK) HAD RECEIVED 4 INFUSIONS
     Route: 042
     Dates: start: 20090528, end: 20090528
  2. CYCLOPHOSPHAMIDE [Suspect]
     Indication: BREAST CANCER
  3. ADRIAMYCIN RDF [Suspect]
     Indication: BREAST CANCER
  4. NAPROXEN [Suspect]
     Route: 048
     Dates: start: 20090416
  5. OMEPRAZOLE [Concomitant]
  6. DEXAMETHASONE [Concomitant]
  7. ONDANSETRON [Concomitant]
  8. AMOXICILLIN [Concomitant]
  9. COLOXYL + SENNA [Concomitant]
  10. WARFARIN [Concomitant]
  11. SPIRONOLACTONE [Concomitant]
  12. DIGOXIN [Concomitant]
  13. METOPROLOL SUCCINATE [Concomitant]

REACTIONS (1)
  - ANAEMIA MACROCYTIC [None]
